FAERS Safety Report 11046472 (Version 1)
Quarter: 2015Q2

REPORT INFORMATION
  Report Type: Spontaneous
  Country: US (occurrence: US)
  Receive Date: 20150420
  Receipt Date: 20150420
  Transmission Date: 20150821
  Serious: No
  Sender: FDA-Public Use
  Company Number: US-TEVA-505031USA

PATIENT
  Sex: Female

DRUGS (2)
  1. GABAPENTIN. [Suspect]
     Active Substance: GABAPENTIN
     Indication: MUSCLE SPASMS
     Dosage: DOSE AND FREQUENCY NOT PROVIDED
  2. COPAXONE [Concomitant]
     Active Substance: GLATIRAMER ACETATE
     Indication: MULTIPLE SCLEROSIS
     Dates: start: 20130217

REACTIONS (8)
  - Memory impairment [Unknown]
  - Paraesthesia [Unknown]
  - Skin burning sensation [Unknown]
  - Balance disorder [Unknown]
  - Disturbance in attention [Unknown]
  - Headache [Unknown]
  - Dysphemia [Unknown]
  - Muscle spasms [Unknown]
